FAERS Safety Report 23279921 (Version 2)
Quarter: 2023Q4

REPORT INFORMATION
  Report Type: Report from Study
  Country: US (occurrence: US)
  Receive Date: 20231209
  Receipt Date: 20231212
  Transmission Date: 20240110
  Serious: Yes (Other)
  Sender: FDA-Public Use
  Company Number: US-UCBSA-2023057797

PATIENT
  Sex: Male

DRUGS (3)
  1. LEVETIRACETAM [Suspect]
     Active Substance: LEVETIRACETAM
     Indication: Seizure
     Dosage: 750MG - 3TAB IN AM + 2TAB IN EVENING (KEPPRA)
  2. LEVETIRACETAM [Suspect]
     Active Substance: LEVETIRACETAM
     Dosage: 750MG 2 TABLETS A DAY
  3. LEVETIRACETAM [Suspect]
     Active Substance: LEVETIRACETAM
     Indication: Seizure
     Dosage: UNK, GENERIC DRUG

REACTIONS (4)
  - Leukaemia [Unknown]
  - Bone marrow transplant [Unknown]
  - Diarrhoea [Recovered/Resolved]
  - Product substitution issue [Unknown]
